FAERS Safety Report 17485257 (Version 1)
Quarter: 2020Q1

REPORT INFORMATION
  Report Type: Spontaneous
  Country: US (occurrence: US)
  Receive Date: 20200302
  Receipt Date: 20200302
  Transmission Date: 20200409
  Serious: No
  Sender: FDA-Public Use
  Company Number: US-JNJFOC-20200235499

PATIENT
  Age: 72 Year
  Sex: Female
  Weight: 101.24 kg

DRUGS (1)
  1. RIVAROXABAN [Suspect]
     Active Substance: RIVAROXABAN
     Indication: PROPHYLAXIS
     Dosage: PRESCRIPTION NUMBER: 5045858030
     Route: 048

REACTIONS (2)
  - Back pain [Recovered/Resolved]
  - Pruritus [Unknown]
